FAERS Safety Report 5324062-2 (Version None)
Quarter: 2007Q2

REPORT INFORMATION
  Report Type: 
  Country: None (occurrence: None)
  Receive Date: 20070514
  Receipt Date: 20070504
  Transmission Date: 20071010
  Serious: Yes (Other)
  Sender: FDA-Public Use
  Company Number: PT-ABBOTT-07P-130-0367025-00

PATIENT
  Sex: Female
  Weight: 64 kg

DRUGS (7)
  1. KLACID [Suspect]
     Indication: HELICOBACTER INFECTION
     Route: 048
     Dates: start: 20070207, end: 20070212
  2. CARBAMAZEPINE PROLONGED RELEASE (CARBAMAZEPINE PROLONGED RELEASE) [Interacting]
     Indication: CEREBROVASCULAR ACCIDENT
     Route: 048
  3. INDAPAMIDE [Concomitant]
     Indication: HYPERTENSION
     Route: 048
  4. CILAZAPRIL MONOHYDRATE [Concomitant]
     Indication: HYPERTENSION
     Route: 048
  5. AMOXICILLIN TRIHYDRATE [Concomitant]
     Indication: DRUG USE FOR UNKNOWN INDICATION
     Route: 048
     Dates: start: 20070207
  6. LANSOPRAZOLE [Concomitant]
     Indication: GASTRITIS
     Route: 048
  7. SIMVASTATIN [Concomitant]
     Indication: DYSLIPIDAEMIA
     Route: 048

REACTIONS (7)
  - ABDOMINAL PAIN UPPER [None]
  - BALANCE DISORDER [None]
  - DIZZINESS [None]
  - DRUG INTERACTION [None]
  - DRUG LEVEL INCREASED [None]
  - HEADACHE [None]
  - VOMITING [None]
